FAERS Safety Report 17797254 (Version 1)
Quarter: 2020Q2

REPORT INFORMATION
  Report Type: Spontaneous
  Country: US (occurrence: US)
  Receive Date: 20200515
  Receipt Date: 20200515
  Transmission Date: 20200714
  Serious: Yes (Death)
  Sender: FDA-Public Use
  Company Number: None

PATIENT
  Sex: Female

DRUGS (20)
  1. FLOVENT HFA AER [Concomitant]
  2. FUROSEMIDE. [Concomitant]
     Active Substance: FUROSEMIDE
  3. VYNDAMAX [Suspect]
     Active Substance: TAFAMIDIS
     Indication: AMYLOIDOSIS
     Route: 048
     Dates: start: 20200111
  4. LOSARTAN POT [Concomitant]
     Active Substance: LOSARTAN POTASSIUM
  5. METRONIDAZOL [Concomitant]
     Active Substance: METRONIDAZOLE
  6. AZELASTINE. [Concomitant]
     Active Substance: AZELASTINE HYDROCHLORIDE
  7. CEFDINIR. [Concomitant]
     Active Substance: CEFDINIR
  8. CLONAZEPAM. [Concomitant]
     Active Substance: CLONAZEPAM
  9. NIFEDIPINE. [Concomitant]
     Active Substance: NIFEDIPINE
  10. CLOPIDOGREL [Concomitant]
     Active Substance: CLOPIDOGREL BISULFATE
  11. OMEPRAZOLE. [Concomitant]
     Active Substance: OMEPRAZOLE
  12. SPIRIVA [Concomitant]
     Active Substance: TIOTROPIUM BROMIDE MONOHYDRATE
  13. FLUTICASONE. [Concomitant]
     Active Substance: FLUTICASONE
  14. PREDISONE [Concomitant]
     Active Substance: PREDNISONE
  15. AMITRIPTLYN [Concomitant]
  16. AMOXICILLIN. [Concomitant]
     Active Substance: AMOXICILLIN
  17. ASPIRIN. [Concomitant]
     Active Substance: ASPIRIN
  18. DOXYCYCL HYC [Concomitant]
  19. LABETALOL [Concomitant]
     Active Substance: LABETALOL\LABETALOL HYDROCHLORIDE
  20. MELOXICAM. [Concomitant]
     Active Substance: MELOXICAM

REACTIONS (1)
  - Death [None]
